FAERS Safety Report 21837777 (Version 1)
Quarter: 2023Q1

REPORT INFORMATION
  Report Type: Spontaneous
  Country: US (occurrence: US)
  Receive Date: 20230109
  Receipt Date: 20230109
  Transmission Date: 20230418
  Serious: Yes (Disabling, Other)
  Sender: FDA-Public Use
  Company Number: US-002147023-NVSC2023US003500

PATIENT
  Age: 79 Year
  Sex: Female

DRUGS (3)
  1. LEQVIO [Suspect]
     Active Substance: INCLISIRAN SODIUM
     Indication: Peripheral arterial occlusive disease
     Dosage: 284 MG, ONCE/SINGLE
     Route: 058
     Dates: start: 202212
  2. LEQVIO [Suspect]
     Active Substance: INCLISIRAN SODIUM
     Indication: Peripheral vascular disorder
  3. LEQVIO [Suspect]
     Active Substance: INCLISIRAN SODIUM
     Indication: High density lipoprotein abnormal

REACTIONS (1)
  - Embolic stroke [Not Recovered/Not Resolved]

NARRATIVE: CASE EVENT DATE: 20221201
